FAERS Safety Report 7391644-6 (Version None)
Quarter: 2011Q1

REPORT INFORMATION
  Report Type: 
  Country: None (occurrence: None)
  Receive Date: 20110324
  Receipt Date: 20110309
  Transmission Date: 20110831
  Serious: Yes (Hospitalization)
  Sender: FDA-Public Use
  Company Number: 2011MA001848

PATIENT
  Age: 81 Year
  Sex: Male

DRUGS (8)
  1. CHLORTHALIDONE [Concomitant]
  2. ACID [Concomitant]
  3. OMEPRAZOLE [Concomitant]
  4. LISINOPRIL [Concomitant]
  5. AMLODIPINE [Concomitant]
  6. ASPIRIN [Concomitant]
  7. DICLOFENAC SODIUM [Suspect]
     Dosage: 50 MG, TID; PO
     Route: 048
  8. ATENOLOL [Concomitant]

REACTIONS (5)
  - RENAL FAILURE ACUTE [None]
  - GASTROENTERITIS [None]
  - OEDEMA PERIPHERAL [None]
  - DIARRHOEA [None]
  - DEHYDRATION [None]
